FAERS Safety Report 6546715-0 (Version None)
Quarter: 2010Q1

REPORT INFORMATION
  Report Type: 
  Country: None (occurrence: None)
  Receive Date: 20100119
  Receipt Date: 20091007
  Transmission Date: 20100710
  Serious: Yes (Other)
  Sender: FDA-Public Use
  Company Number: A-NJ2009-27691

PATIENT
  Age: 74 Year
  Sex: Male
  Weight: 98.9 kg

DRUGS (14)
  1. TRACLEER [Suspect]
     Indication: PULMONARY ARTERIAL HYPERTENSION
     Dosage: 62.5 MG, BID, ORAL
     Route: 048
     Dates: start: 20090917, end: 20090922
  2. ASPIRIN [Concomitant]
  3. ACCUPRIL [Concomitant]
  4. FUROSEMIDE [Concomitant]
  5. SERTRALINE HCL [Concomitant]
  6. TIKOSYN [Concomitant]
  7. ZOCOR (WARFARIN) [Concomitant]
  8. WARFARIN SODIUM [Concomitant]
  9. ADVAIR DISKUS 100/50 [Concomitant]
  10. SPIRIVA [Concomitant]
  11. REVATIO [Concomitant]
  12. CARVEDILOL [Concomitant]
  13. OXYGEN (OXYGEN) [Concomitant]
  14. METOLAZONE [Concomitant]

REACTIONS (2)
  - HYPERSENSITIVITY [None]
  - SWELLING FACE [None]
